FAERS Safety Report 23240164 (Version 1)
Quarter: 2023Q4

REPORT INFORMATION
  Report Type: Spontaneous
  Country: US (occurrence: US)
  Receive Date: 20231129
  Receipt Date: 20231129
  Transmission Date: 20240110
  Serious: No
  Sender: FDA-Public Use
  Company Number: US-Blueprint Medicines Corporation-1739

PATIENT
  Age: 14 Year
  Sex: Male

DRUGS (2)
  1. AYVAKIT [Suspect]
     Active Substance: AVAPRITINIB
     Indication: Brain neoplasm malignant
     Dosage: 250MG DAILY (ODD DAYS), 200MG DAILY (EVEN DAYS)
     Route: 065
     Dates: start: 20221003
  2. AYVAKIT [Suspect]
     Active Substance: AVAPRITINIB
     Dosage: 250MG DAILY (ODD DAYS), 200MG DAILY (EVEN DAYS)
     Route: 065
     Dates: start: 20221003

REACTIONS (2)
  - Intentional dose omission [Unknown]
  - Off label use [Unknown]

NARRATIVE: CASE EVENT DATE: 20221003
